FAERS Safety Report 25373762 (Version 1)
Quarter: 2025Q2

REPORT INFORMATION
  Report Type: Spontaneous
  Country: CA (occurrence: None)
  Receive Date: 20250528
  Receipt Date: 20250528
  Transmission Date: 20250717
  Serious: Yes (Hospitalization, Disabling)
  Sender: FDA-CTU
  Company Number: None

PATIENT
  Age: 20 Year
  Sex: Male
  Weight: 76.5 kg

DRUGS (2)
  1. PAROXETINE [Suspect]
     Active Substance: PAROXETINE
     Indication: Anxiety
     Dosage: FREQUENCY : DAILY;?
     Route: 048
     Dates: start: 20150415, end: 20150520
  2. VENLAFAXINE [Suspect]
     Active Substance: VENLAFAXINE HYDROCHLORIDE

REACTIONS (38)
  - Anxiety [None]
  - Withdrawal syndrome [None]
  - Fatigue [None]
  - Confusional state [None]
  - Vision blurred [None]
  - Electric shock sensation [None]
  - Influenza like illness [None]
  - Palpitations [None]
  - Decreased appetite [None]
  - Muscle spasms [None]
  - Myalgia [None]
  - Muscle tightness [None]
  - Brain fog [None]
  - Aggression [None]
  - Depersonalisation/derealisation disorder [None]
  - Anxiety [None]
  - Intrusive thoughts [None]
  - Irritability [None]
  - Mood swings [None]
  - Nightmare [None]
  - Feeling of despair [None]
  - Crying [None]
  - Derealisation [None]
  - Disturbance in attention [None]
  - Insomnia [None]
  - Thought withdrawal [None]
  - Vitreous floaters [None]
  - Halo vision [None]
  - Gastrointestinal disorder [None]
  - Electric shock sensation [None]
  - Weight decreased [None]
  - Photosensitivity reaction [None]
  - Hyperacusis [None]
  - Akathisia [None]
  - Panic attack [None]
  - Joint noise [None]
  - Trismus [None]
  - Loose body in joint [None]

NARRATIVE: CASE EVENT DATE: 20150708
